FAERS Safety Report 23049858 (Version 1)
Quarter: 2023Q4

REPORT INFORMATION
  Report Type: Spontaneous
  Country: ES (occurrence: ES)
  Receive Date: 20231010
  Receipt Date: 20231010
  Transmission Date: 20240110
  Serious: Yes (Other)
  Sender: FDA-Public Use
  Company Number: ES-PFIZER INC-202300305500

PATIENT
  Age: 3 Year
  Sex: Male

DRUGS (8)
  1. SPORANOX [Interacting]
     Active Substance: ITRACONAZOLE
     Indication: Antifungal treatment
     Dosage: 5 MG/KG, DAILY
     Route: 048
  2. VINCRISTINE SULFATE [Interacting]
     Active Substance: VINCRISTINE SULFATE
     Indication: Acute lymphocytic leukaemia
     Dosage: 1.5 MG/M2, WEEKLY FOR 4 DOSES
     Route: 065
  3. CYTARABINE [Concomitant]
     Active Substance: CYTARABINE
     Indication: Product used for unknown indication
     Dosage: 2 DOSES
     Route: 029
  4. METHOTREXATE [Concomitant]
     Active Substance: METHOTREXATE
     Indication: Product used for unknown indication
     Dosage: 2 DOSES
     Route: 037
  5. HYDROCORTISONE [Concomitant]
     Active Substance: HYDROCORTISONE
     Indication: Product used for unknown indication
     Dosage: 2 DOSES
     Route: 029
  6. DAUNORUBICIN [Concomitant]
     Active Substance: DAUNORUBICIN
     Indication: Product used for unknown indication
     Dosage: 30MG/M2 WEEKLY FOR 4 DOSES
     Route: 065
  7. PREDNISONE [Concomitant]
     Active Substance: PREDNISONE
     Indication: Product used for unknown indication
     Dosage: 60MG/M2 DAILY FOR 28DAYS
     Route: 065
  8. ASPARAGINASE [Concomitant]
     Active Substance: ASPARAGINASE
     Indication: Product used for unknown indication
     Dosage: 10,000 IU/M2/D FOR 9 DAYS
     Route: 065

REACTIONS (16)
  - Neurotoxicity [Recovered/Resolved]
  - Orthostatic hypotension [Recovered/Resolved]
  - Gait inability [Recovered/Resolved]
  - Hyponatraemia [Recovered/Resolved]
  - Nausea [Recovered/Resolved]
  - Neurogenic bladder [Recovered/Resolved]
  - Ileus [Recovered/Resolved]
  - Monoplegia [Recovered/Resolved]
  - Areflexia [Recovered/Resolved]
  - Constipation [Recovered/Resolved]
  - Mobility decreased [Recovered/Resolved]
  - Drug interaction [Recovered/Resolved]
  - Muscular weakness [Recovered/Resolved]
  - Eyelid ptosis [Recovered/Resolved]
  - Pain in jaw [Recovered/Resolved]
  - Ileus paralytic [Recovered/Resolved]
